FAERS Safety Report 18059040 (Version 1)
Quarter: 2020Q3

REPORT INFORMATION
  Report Type: Spontaneous
  Country: US (occurrence: US)
  Receive Date: 20200722
  Receipt Date: 20200722
  Transmission Date: 20201103
  Serious: Yes (Other)
  Sender: FDA-Public Use
  Company Number: None

PATIENT
  Age: 34 Year
  Sex: Female

DRUGS (4)
  1. BUPRENORPHINE NALOXONE 2?0.5MG TABLETS [Concomitant]
     Dates: start: 20200529, end: 20200621
  2. BUPRENORPHINE AND NALOXONE [Suspect]
     Active Substance: BUPRENORPHINE HYDROCHLORIDE\NALOXONE HYDROCHLORIDE
     Indication: DRUG DEPENDENCE
     Route: 048
     Dates: start: 20200304, end: 20200312
  3. ZUBSOLV 2.9 MG?0.71 MG TABLET [Concomitant]
     Dates: end: 20200722
  4. BUPRENORPHINE NALOXONE 8?NG TABLETS [Concomitant]
     Active Substance: BUPRENORPHINE\NALOXONE
     Dates: start: 20200528, end: 20200528

REACTIONS (4)
  - Drug level below therapeutic [None]
  - Therapeutic product effect incomplete [None]
  - Nausea [None]
  - Product taste abnormal [None]

NARRATIVE: CASE EVENT DATE: 20200721
